FAERS Safety Report 24656310 (Version 1)
Quarter: 2024Q4

REPORT INFORMATION
  Report Type: Spontaneous
  Country: US (occurrence: US)
  Receive Date: 20241124
  Receipt Date: 20241124
  Transmission Date: 20250115
  Serious: Yes (Death, Life-Threatening, Hospitalization, Other)
  Sender: AMGEN
  Company Number: US-AMGEN-USASP2024229381

PATIENT

DRUGS (2)
  1. RITUXIMAB [Suspect]
     Active Substance: RITUXIMAB
     Indication: Immunosuppression
     Dosage: UNK
     Route: 065
  2. PREDNISONE [Suspect]
     Active Substance: PREDNISONE
     Indication: Immunosuppression
     Dosage: UNK
     Route: 065

REACTIONS (18)
  - Death [Fatal]
  - Unevaluable event [Unknown]
  - Respiratory syncytial virus infection [Unknown]
  - Pneumocystis jirovecii infection [Unknown]
  - Aspergillus infection [Unknown]
  - Mucormycosis [Unknown]
  - Histoplasmosis [Unknown]
  - Influenza [Unknown]
  - COVID-19 [Unknown]
  - Adenovirus infection [Unknown]
  - Epstein-Barr virus infection [Unknown]
  - Human herpesvirus 6 infection [Unknown]
  - Candida infection [Unknown]
  - Herpes simplex [Unknown]
  - Herpes zoster [Unknown]
  - Cytomegalovirus infection [Unknown]
  - Fungal infection [Unknown]
  - Off label use [Unknown]
